FAERS Safety Report 7727781 (Version 2)
Quarter: 2016Q3

REPORT INFORMATION
  Report Type: Report from Study
  Country: US (occurrence: US)
  Receive Date: 20101222
  Receipt Date: 20160707
  Transmission Date: 20161109
  Serious: Yes (Other)
  Sender: FDA-Public Use
  Company Number: US-SANOFI-AVENTIS-2010SA075888

PATIENT
  Age: 59 Year
  Sex: Female
  Weight: 121 kg

DRUGS (3)
  1. SOLOSTAR [Concomitant]
     Active Substance: DEVICE
     Indication: TYPE 2 DIABETES MELLITUS
     Dates: start: 2010
  2. LANTUS SOLOSTAR [Suspect]
     Active Substance: INSULIN GLARGINE
     Indication: TYPE 2 DIABETES MELLITUS
     Dosage: DOSE:65 UNIT(S)
     Route: 058
  3. LANTUS SOLOSTAR [Suspect]
     Active Substance: INSULIN GLARGINE
     Indication: TYPE 2 DIABETES MELLITUS
     Dosage: 73 TO 77 UNITS
     Route: 058
     Dates: start: 2010

REACTIONS (8)
  - Myalgia [Recovering/Resolving]
  - Back disorder [Unknown]
  - Decreased appetite [Unknown]
  - Blood glucose decreased [Unknown]
  - Weight decreased [Unknown]
  - Breast cancer [Unknown]
  - Arthritis [Recovering/Resolving]
  - Tremor [Unknown]

NARRATIVE: CASE EVENT DATE: 201001
